FAERS Safety Report 6701270-7 (Version None)
Quarter: 2010Q2

REPORT INFORMATION
  Report Type: 
  Country: None (occurrence: None)
  Receive Date: 20100427
  Receipt Date: 20100416
  Transmission Date: 20101027
  Serious: Yes (Other)
  Sender: FDA-Public Use
  Company Number: 2010S1000032

PATIENT
  Age: 4 Day
  Sex: Male

DRUGS (4)
  1. NITRIC OXIDE [Suspect]
     Indication: PULMONARY HYPERTENSION
     Dosage: CONT; INH
     Route: 055
  2. NITRIC OXIDE [Suspect]
     Indication: RESPIRATORY FAILURE
     Dosage: CONT; INH
     Route: 055
  3. MILRINONE [Concomitant]
  4. EPOPROSTENOL [Concomitant]

REACTIONS (1)
  - PULMONARY HAEMORRHAGE [None]
